FAERS Safety Report 7747159-6 (Version None)
Quarter: 2011Q3

REPORT INFORMATION
  Report Type: 
  Country: None (occurrence: None)
  Receive Date: 20110908
  Receipt Date: 20110827
  Transmission Date: 20111222
  Serious: Yes (Hospitalization, Other)
  Sender: FDA-Public Use
  Company Number: 1000023448

PATIENT
  Age: 25 Year
  Sex: Female

DRUGS (4)
  1. CITALOPRAM HYDROBROMIDE [Suspect]
     Indication: DEPRESSION
     Dosage: 20 UP TO 60 MG (1 IN 1 D),ORAL
     Route: 048
     Dates: start: 20081001, end: 20081101
  2. MIRTAZAPIN (MIRTAZAPINE)(MIRTAZAPINE) [Concomitant]
  3. OPIPRAMOL (OPIPRAMOL) (OPIPRAMOL) [Concomitant]
  4. ZOLPIDEM (ZOLPIDEM)(ZOLPIDEM) [Concomitant]

REACTIONS (10)
  - SCOTOMA [None]
  - OEDEMA PERIPHERAL [None]
  - HEADACHE [None]
  - ATRIAL SEPTAL DEFECT [None]
  - PARAESTHESIA [None]
  - BLOOD GLUCOSE INCREASED [None]
  - MYDRIASIS [None]
  - OPTIC NEURITIS [None]
  - DYSAESTHESIA [None]
  - GALACTORRHOEA [None]
